FAERS Safety Report 5103223-1 (Version None)
Quarter: 2006Q3

REPORT INFORMATION
  Report Type: 
  Country: None (occurrence: None)
  Receive Date: 20060911
  Receipt Date: 20060911
  Transmission Date: 20061208
  Serious: Yes (Hospitalization)
  Sender: FDA-Public Use
  Company Number: None

PATIENT
  Sex: Male
  Weight: 35.9 kg

DRUGS (1)
  1. MAXALT-MLT [Suspect]
     Indication: HEADACHE
     Dosage: 10 MG Q 2 HRS PRN PO
     Route: 048
     Dates: start: 20060905

REACTIONS (3)
  - ANXIETY [None]
  - HEADACHE [None]
  - HYPERHIDROSIS [None]
